FAERS Safety Report 15713310 (Version 1)
Quarter: 2018Q4

REPORT INFORMATION
  Report Type: Spontaneous
  Country: US (occurrence: US)
  Receive Date: 20181212
  Receipt Date: 20181212
  Transmission Date: 20190205
  Serious: No
  Sender: FDA-Public Use
  Company Number: US-009507513-1811USA010420

PATIENT
  Sex: Female

DRUGS (8)
  1. ERYTHROMYCIN. [Concomitant]
     Active Substance: ERYTHROMYCIN
     Dosage: 5MG/GM
  2. ACETAZOLAMIDE. [Concomitant]
     Active Substance: ACETAZOLAMIDE
     Dosage: UNK
  3. LIDOCAINE (+) PRILOCAINE [Concomitant]
     Dosage: UNK
  4. DARZALEX [Concomitant]
     Active Substance: DARATUMUMAB
     Dosage: 100MG/5M, SOL
  5. AUGMENTIN [Concomitant]
     Active Substance: AMOXICILLIN\CLAVULANATE POTASSIUM
     Dosage: UNK
  6. METHYLPREDNISOLONE. [Concomitant]
     Active Substance: METHYLPREDNISOLONE
     Dosage: UNK
  7. INTRON A [Suspect]
     Active Substance: INTERFERON ALFA-2B
     Indication: PLASMACYTOMA
     Dosage: 300,000 UNITS (0.05 ML) 3 TIMES A WEEK (MONDAY, WEDNESDAY AND FRIDAY), STRENGTH: 18MIU 3ML MDV
     Route: 023
  8. ACYCLOVIR. [Concomitant]
     Active Substance: ACYCLOVIR
     Dosage: UNK

REACTIONS (3)
  - Product use in unapproved indication [Unknown]
  - Fatigue [Not Recovered/Not Resolved]
  - Product dose omission [Unknown]
